FAERS Safety Report 6315984-4 (Version None)
Quarter: 2009Q3

REPORT INFORMATION
  Report Type: 
  Country: None (occurrence: None)
  Receive Date: 20090820
  Receipt Date: 20090813
  Transmission Date: 20100115
  Serious: Yes (Hospitalization)
  Sender: FDA-Public Use
  Company Number: CH-JNJFOC-20090803837

PATIENT
  Age: 47 Year
  Sex: Male

DRUGS (15)
  1. DURAGESIC-100 [Suspect]
     Route: 062
  2. DURAGESIC-100 [Suspect]
     Route: 062
  3. DURAGESIC-100 [Suspect]
     Route: 062
  4. DURAGESIC-100 [Suspect]
     Indication: DRUG USE FOR UNKNOWN INDICATION
     Route: 062
  5. MORPHINE [Suspect]
     Indication: ARTHRALGIA
     Route: 048
  6. RIVOTRIL [Suspect]
     Indication: DRUG USE FOR UNKNOWN INDICATION
     Route: 048
  7. DALMADORM [Suspect]
     Indication: DRUG USE FOR UNKNOWN INDICATION
     Route: 048
  8. LANTUS [Concomitant]
     Route: 058
  9. SEROQUEL [Concomitant]
     Route: 048
  10. VITAMIN B COMPLEX CAP [Concomitant]
     Route: 048
  11. BENERVA [Concomitant]
     Route: 048
  12. FOLVITE [Concomitant]
     Route: 048
  13. KONAKION [Concomitant]
     Route: 048
  14. ALDACTONE [Concomitant]
     Route: 048
  15. NEXIUM [Concomitant]
     Route: 048

REACTIONS (2)
  - OVERDOSE [None]
  - RESPIRATORY FAILURE [None]
